FAERS Safety Report 8500229-7 (Version None)
Quarter: 2012Q3

REPORT INFORMATION
  Report Type: 
  Country: None (occurrence: None)
  Receive Date: 20120710
  Receipt Date: 20120704
  Transmission Date: 20120928
  Serious: Yes (Hospitalization)
  Sender: FDA-Public Use
  Company Number: GXKR2010US13004

PATIENT
  Age: 13 Month
  Sex: Female
  Weight: 12 kg

DRUGS (1)
  1. DIPHENHYDRAMINE HCL [Suspect]
     Dosage: 24 DF, ONCE/SINGLE
     Route: 065

REACTIONS (10)
  - MENTAL STATUS CHANGES [None]
  - LETHARGY [None]
  - TACHYCARDIA [None]
  - SKIN WARM [None]
  - AGITATION [None]
  - NYSTAGMUS [None]
  - DRY SKIN [None]
  - GRAND MAL CONVULSION [None]
  - FLUSHING [None]
  - OVERDOSE [None]
